FAERS Safety Report 8286884-8 (Version None)
Quarter: 2012Q2

REPORT INFORMATION
  Report Type: 
  Country: None (occurrence: None)
  Receive Date: 20120416
  Receipt Date: 20120406
  Transmission Date: 20120825
  Serious: Yes (Life-Threatening, Hospitalization)
  Sender: FDA-Public Use
  Company Number: US-BAYER-2012-031636

PATIENT
  Age: 22 Year
  Sex: Female
  Weight: 68.027 kg

DRUGS (4)
  1. NAPROSYN [Concomitant]
     Indication: DYSMENORRHOEA
  2. YAZ [Suspect]
     Indication: DYSMENORRHOEA
  3. YAZ [Suspect]
     Indication: MENORRHAGIA
  4. AMOXICILLIN [Concomitant]
     Dosage: 2 TEASPOON EVERY 8 HOURS
     Route: 048

REACTIONS (1)
  - PULMONARY EMBOLISM [None]
